FAERS Safety Report 9772025 (Version 1)
Quarter: 2013Q4

REPORT INFORMATION
  Report Type: Report from Study
  Country: LB (occurrence: LB)
  Receive Date: 20131219
  Receipt Date: 20131219
  Transmission Date: 20140711
  Serious: Yes (Death)
  Sender: FDA-Public Use
  Company Number: LB-SA-2013SA129663

PATIENT
  Sex: 0

DRUGS (6)
  1. LANTUS SOLOSTAR [Suspect]
     Indication: DIABETES MELLITUS
     Dosage: DOSE: 10-20U
     Route: 058
     Dates: start: 2012, end: 2013
  2. SOLOSTAR [Concomitant]
     Indication: DEVICE THERAPY
     Dates: start: 2012, end: 2013
  3. AMLODIPINE BESILATE [Concomitant]
     Route: 048
  4. LASIX [Concomitant]
     Route: 048
  5. ASPICOT [Concomitant]
     Route: 048
  6. DILATREND [Concomitant]
     Route: 048

REACTIONS (2)
  - Haemodialysis [Fatal]
  - General physical health deterioration [Fatal]
